FAERS Safety Report 24632072 (Version 1)
Quarter: 2024Q4

REPORT INFORMATION
  Report Type: Spontaneous
  Country: PR (occurrence: PR)
  Receive Date: 20241118
  Receipt Date: 20241118
  Transmission Date: 20250115
  Serious: No
  Sender: PFIZER
  Company Number: PR-PFIZER INC-202400302433

PATIENT
  Age: 77 Year
  Sex: Male

DRUGS (7)
  1. IBRANCE [Suspect]
     Active Substance: PALBOCICLIB
     Indication: Neoplasm malignant
     Dosage: 125 MG, CYCLIC, FOR 21 DAYS
     Dates: start: 20240503, end: 20241030
  2. VITAMIN B COMPLEX [Concomitant]
     Active Substance: CYANOCOBALAMIN\DEXPANTHENOL\NIACINAMIDE\PYRIDOXINE HYDROCHLORIDE\RIBOFLAVIN 5^-PHOSPHATE SODIUM\THIA
  3. PROTECT PLUS SO [Concomitant]
  4. ASCORBIC ACID [Concomitant]
     Active Substance: ASCORBIC ACID
  5. CANDESARTAN [Concomitant]
     Active Substance: CANDESARTAN
  6. FARXIGA [Concomitant]
     Active Substance: DAPAGLIFLOZIN PROPANEDIOL
  7. LOKELMA [Concomitant]
     Active Substance: SODIUM ZIRCONIUM CYCLOSILICATE

REACTIONS (1)
  - Neoplasm progression [Unknown]
